FAERS Safety Report 5743686-1 (Version None)
Quarter: 2008Q2

REPORT INFORMATION
  Report Type: 
  Country: None (occurrence: None)
  Receive Date: 20080520
  Receipt Date: 20080508
  Transmission Date: 20081010
  Serious: Yes (Hospitalization)
  Sender: FDA-Public Use
  Company Number: BE-BAYER-200812643GPV

PATIENT
  Age: 41 Year
  Sex: Female

DRUGS (1)
  1. MIRENA [Suspect]
     Indication: CONTRACEPTION
     Route: 015
     Dates: start: 20071219, end: 20071222

REACTIONS (4)
  - ABDOMINAL PAIN [None]
  - ABDOMINAL SEPSIS [None]
  - PELVIC INFLAMMATORY DISEASE [None]
  - PERITONITIS [None]
